FAERS Safety Report 4580500-4 (Version None)
Quarter: 2005Q1

REPORT INFORMATION
  Report Type: 
  Country: None (occurrence: None)
  Receive Date: 20050214
  Receipt Date: 20040205
  Transmission Date: 20050727
  Serious: No
  Sender: FDA-Public Use
  Company Number: US-GLAXOSMITHKLINE-A0497419A

PATIENT
  Sex: Male

DRUGS (5)
  1. LAMICTAL [Suspect]
     Indication: EPILEPSY
  2. KEFLEX [Concomitant]
     Indication: ACNE
  3. VITAMIN [Concomitant]
     Indication: ILL-DEFINED DISORDER
  4. TYLENOL [Concomitant]
     Indication: HEADACHE
  5. GUAIFENESIN [Concomitant]
     Indication: SINUS CONGESTION

REACTIONS (1)
  - ADVERSE EVENT [None]
